FAERS Safety Report 20334074 (Version 1)
Quarter: 2022Q1

REPORT INFORMATION
  Report Type: Spontaneous
  Country: US (occurrence: None)
  Receive Date: 20220111
  Receipt Date: 20220111
  Transmission Date: 20220423
  Serious: Yes (Hospitalization, Other)
  Sender: FDA-Public Use
  Company Number: None

PATIENT
  Age: 40 Year
  Sex: Male
  Weight: 75.3 kg

DRUGS (2)
  1. PAXLOVID [Suspect]
     Active Substance: NIRMATRELVIR\RITONAVIR
     Indication: SARS-CoV-2 test positive
     Dosage: FREQUENCY : TWICE A DAY ORAL?
     Route: 048
     Dates: start: 20220101, end: 20220103
  2. TACROLIMUS [Concomitant]
     Active Substance: TACROLIMUS

REACTIONS (6)
  - Back pain [None]
  - Abdominal pain [None]
  - Fatigue [None]
  - Hypotension [None]
  - Hypothermia [None]
  - Acute kidney injury [None]

NARRATIVE: CASE EVENT DATE: 20220106
